FAERS Safety Report 24096444 (Version 2)
Quarter: 2024Q3

REPORT INFORMATION
  Report Type: Spontaneous
  Country: US (occurrence: US)
  Receive Date: 20240716
  Receipt Date: 20240818
  Transmission Date: 20241016
  Serious: No
  Sender: LUPIN
  Company Number: US-LUPIN PHARMACEUTICALS INC.-2024-06555

PATIENT

DRUGS (1)
  1. BROMFENAC [Suspect]
     Active Substance: BROMFENAC
     Indication: Product used for unknown indication
     Dosage: UNK
     Route: 047

REACTIONS (1)
  - Eye irritation [Unknown]
